FAERS Safety Report 8871407 (Version 2)
Quarter: 2012Q4

REPORT INFORMATION
  Report Type: 
  Country: AR (occurrence: AR)
  Receive Date: 20121029
  Receipt Date: 20121106
  Transmission Date: 20130627
  Serious: Yes (Other)
  Sender: FDA-Public Use
  Company Number: AR-BRISTOL-MYERS SQUIBB COMPANY-17061961

PATIENT
  Age: 58 Year
  Sex: Female
  Weight: 50 kg

DRUGS (3)
  1. BELATACEPT [Suspect]
     Indication: RENAL TRANSPLANT
     Dosage: Received 2 doses,500 mg each on days 1 and 5.
21Oct and 31Oct2012
     Dates: start: 20121017
  2. BASILIXIMAB [Concomitant]
  3. MYCOPHENOLATE MOFETIL [Concomitant]

REACTIONS (1)
  - Epilepsy [Unknown]
